FAERS Safety Report 7442812-6 (Version None)
Quarter: 2011Q2

REPORT INFORMATION
  Report Type: 
  Country: None (occurrence: None)
  Receive Date: 20110428
  Receipt Date: 20110418
  Transmission Date: 20111010
  Serious: Yes (Disabling, Other)
  Sender: FDA-Public Use
  Company Number: CH-JNJFOC-20110406946

PATIENT
  Age: 90 Year
  Sex: Male

DRUGS (8)
  1. SEROQUEL [Suspect]
     Indication: ANXIETY
     Route: 048
  2. CLOMETHIAZOLE [Concomitant]
     Route: 048
  3. SEROQUEL [Suspect]
     Indication: AGITATION
     Route: 048
  4. HALDOL [Suspect]
     Indication: AGITATION
     Route: 048
  5. SEROQUEL [Suspect]
     Indication: CONFUSIONAL STATE
     Route: 048
  6. ASPIRIN [Concomitant]
     Route: 048
  7. HALDOL [Suspect]
     Indication: ANXIETY
     Route: 048
  8. HALDOL [Suspect]
     Indication: CONFUSIONAL STATE
     Route: 048

REACTIONS (4)
  - EXTRAPYRAMIDAL DISORDER [None]
  - TREMOR [None]
  - CLOSTRIDIUM DIFFICILE COLITIS [None]
  - GENERAL PHYSICAL HEALTH DETERIORATION [None]
